FAERS Safety Report 13676344 (Version 6)
Quarter: 2017Q4

REPORT INFORMATION
  Report Type: Report from Study
  Country: US (occurrence: US)
  Receive Date: 20170622
  Receipt Date: 20171027
  Transmission Date: 20180320
  Serious: No
  Sender: FDA-Public Use
  Company Number: PHEH2017US018629

PATIENT
  Sex: Female

DRUGS (1)
  1. COSENTYX [Suspect]
     Active Substance: SECUKINUMAB
     Indication: PRODUCT USED FOR UNKNOWN INDICATION
     Dosage: 300 MG, QMO (PEN)
     Route: 065

REACTIONS (7)
  - Device leakage [Unknown]
  - Injection site mass [Unknown]
  - Incorrect dose administered [Unknown]
  - Device issue [Unknown]
  - Psoriasis [Unknown]
  - Fear [Unknown]
  - Injection site haemorrhage [Unknown]
